FAERS Safety Report 12966345 (Version 1)
Quarter: 2016Q4

REPORT INFORMATION
  Report Type: Spontaneous
  Country: US (occurrence: US)
  Receive Date: 20161121
  Receipt Date: 20161121
  Transmission Date: 20170207
  Serious: Yes (Disabling)
  Sender: FDA-Public Use
  Company Number: None

PATIENT
  Age: 57 Year
  Sex: Male
  Weight: 77.4 kg

DRUGS (4)
  1. DELZICOL [Suspect]
     Active Substance: MESALAMINE
     Indication: COLITIS ULCERATIVE
     Dosage: ?          QUANTITY:2 CAPSULE(S);?
     Route: 048
     Dates: start: 20161010, end: 20161024
  2. DAILY MULTI-VITAMIN [Concomitant]
     Active Substance: VITAMINS
  3. MESALAMINE. [Concomitant]
     Active Substance: MESALAMINE
  4. GLUCOSAMINE [Concomitant]
     Active Substance: GLUCOSAMINE

REACTIONS (5)
  - Colitis ulcerative [None]
  - Product substitution issue [None]
  - Food intolerance [None]
  - Anaemia [None]
  - Economic problem [None]

NARRATIVE: CASE EVENT DATE: 20161010
